FAERS Safety Report 7055142-1 (Version None)
Quarter: 2010Q4

REPORT INFORMATION
  Report Type: 
  Country: None (occurrence: None)
  Receive Date: 20101020
  Receipt Date: 20101020
  Transmission Date: 20110411
  Serious: Yes (Other)
  Sender: FDA-Public Use
  Company Number: None

PATIENT

DRUGS (1)
  1. ADDERALL 30 [Suspect]
     Dosage: 30 MG CAP

REACTIONS (1)
  - PSYCHOMOTOR HYPERACTIVITY [None]
